FAERS Safety Report 13647001 (Version 5)
Quarter: 2018Q4

REPORT INFORMATION
  Report Type: Report from Study
  Country: US (occurrence: US)
  Receive Date: 20170613
  Receipt Date: 20181126
  Transmission Date: 20190204
  Serious: Yes (Hospitalization)
  Sender: FDA-Public Use
  Company Number: US-OTSUKA-2017_012813

PATIENT
  Sex: Female

DRUGS (2)
  1. TOLVAPTAN [Suspect]
     Active Substance: TOLVAPTAN
     Indication: BLOOD OSMOLARITY DECREASED
  2. TOLVAPTAN [Suspect]
     Active Substance: TOLVAPTAN
     Indication: HYPONATRAEMIA
     Dosage: 15 MG, TIW
     Route: 048
     Dates: start: 20150703

REACTIONS (5)
  - Hospitalisation [Unknown]
  - Inappropriate schedule of product administration [Unknown]
  - Headache [Unknown]
  - Incorrect product administration duration [Unknown]
  - Pneumonia aspiration [Unknown]
